FAERS Safety Report 9600677 (Version 1)
Quarter: 2013Q4

REPORT INFORMATION
  Report Type: Spontaneous
  Country: US (occurrence: US)
  Receive Date: 20131004
  Receipt Date: 20131004
  Transmission Date: 20140711
  Serious: No
  Sender: FDA-Public Use
  Company Number: US-AMGEN-USASP2013036897

PATIENT
  Age: 49 Year
  Sex: Female
  Weight: 149.66 kg

DRUGS (16)
  1. ENBREL [Suspect]
     Indication: PRODUCT USED FOR UNKNOWN INDICATION
     Dosage: 50 MG, QWK
     Route: 058
  2. NOVOLOG [Concomitant]
     Dosage: 100 ML, UNK
  3. LANTUS [Concomitant]
     Dosage: 100 ML, UNK
  4. JANUVIA [Concomitant]
     Dosage: 25 MG, UNK
  5. ALTACE [Concomitant]
     Dosage: 2.5 MG, UNK
  6. ZOCOR [Concomitant]
     Dosage: 5 MG, UNK
  7. CYMBALTA [Concomitant]
     Dosage: 20 MG, UNK
  8. PERCOCET                           /00446701/ [Concomitant]
     Dosage: 2.5-325
  9. VITAMIN D                          /00107901/ [Concomitant]
     Dosage: 400 UNIT, UNK
  10. MULTIVITAMIN                       /00097801/ [Concomitant]
     Dosage: UNK
  11. OXYBUTYNIN [Concomitant]
     Dosage: 5 MG, UNK
  12. LYRICA [Concomitant]
     Dosage: 25 MG, UNK
  13. XANAX [Concomitant]
     Dosage: 0.25 MG, UNK
  14. METHOTREXATE [Concomitant]
     Dosage: 20 MG, UNK
  15. FOLIC ACID [Concomitant]
     Dosage: 1 MG, UNK
  16. PREDNISONE [Concomitant]
     Dosage: UNK

REACTIONS (1)
  - Skin infection [Unknown]
